FAERS Safety Report 9300854 (Version 1)
Quarter: 2013Q2

REPORT INFORMATION
  Report Type: Spontaneous
  Country: CA (occurrence: CA)
  Receive Date: 20130521
  Receipt Date: 20130521
  Transmission Date: 20140414
  Serious: Yes (Life-Threatening, Other)
  Sender: FDA-Public Use
  Company Number: CA-PURDUE-CAN-2013-0004164

PATIENT
  Age: 33 Year
  Sex: Male

DRUGS (2)
  1. OXYCODONE [Suspect]
     Indication: PRODUCT USED FOR UNKNOWN INDICATION
     Route: 045
  2. COCAINE [Suspect]
     Indication: PRODUCT USED FOR UNKNOWN INDICATION
     Route: 045

REACTIONS (7)
  - Substance abuse [Unknown]
  - Hallucination [Unknown]
  - Aggression [Unknown]
  - Gun shot wound [Recovered/Resolved]
  - Paranoia [Unknown]
  - Agitation [Unknown]
  - Emotional disorder [Unknown]
